FAERS Safety Report 4674331-4 (Version None)
Quarter: 2005Q2

REPORT INFORMATION
  Report Type: 
  Country: None (occurrence: None)
  Receive Date: 20050524
  Receipt Date: 20050505
  Transmission Date: 20051028
  Serious: Yes (Death, Hospitalization, Other)
  Sender: FDA-Public Use
  Company Number: USA050289933

PATIENT
  Age: 66 Year
  Sex: Male
  Weight: 73 kg

DRUGS (16)
  1. ALIMTA [Suspect]
     Indication: NON-SMALL CELL LUNG CANCER METASTATIC
     Dosage: 1000 MG
     Dates: start: 20041213, end: 20050204
  2. GEMZAR [Suspect]
     Indication: NON-SMALL CELL LUNG CANCER METASTATIC
     Dosage: 800 MG/M2
     Dates: start: 20040913, end: 20041115
  3. VITAMIN B-12 [Concomitant]
  4. FOLIC ACID [Concomitant]
  5. DECADRON [Concomitant]
  6. TAXOTERE [Concomitant]
  7. PLAVIX [Concomitant]
  8. LANOXIN (DIGOXIN -SANDOZ) [Concomitant]
  9. XANAX (ALPRAZOLAM DUM) [Concomitant]
  10. COMBIVENT [Concomitant]
  11. ASPIRIN [Concomitant]
  12. FLOMAX [Concomitant]
  13. ALBUTEROL [Concomitant]
  14. ATROVENT [Concomitant]
  15. PROCRIT (EPOETIN ALFA) [Concomitant]
  16. NEULASTA [Concomitant]

REACTIONS (27)
  - ANAEMIA [None]
  - ASTHENIA [None]
  - ATELECTASIS [None]
  - CARDIAC TAMPONADE [None]
  - COMPUTERISED TOMOGRAM ABNORMAL [None]
  - CONFUSIONAL STATE [None]
  - DECREASED APPETITE [None]
  - DEMYELINATION [None]
  - DISEASE PROGRESSION [None]
  - DYSPNOEA [None]
  - DYSPNOEA EXACERBATED [None]
  - FATIGUE [None]
  - HAEMATOCRIT DECREASED [None]
  - HAEMOGLOBIN DECREASED [None]
  - HEADACHE [None]
  - HYPERHIDROSIS [None]
  - LUNG CONSOLIDATION [None]
  - MALIGNANT NEOPLASM PROGRESSION [None]
  - NEOPLASM PROGRESSION [None]
  - PLATELET COUNT INCREASED [None]
  - PLEURAL EFFUSION [None]
  - PULMONARY MASS [None]
  - PYREXIA [None]
  - SHOULDER PAIN [None]
  - SUPERIOR VENA CAVAL OCCLUSION [None]
  - ULCER [None]
  - WHITE BLOOD CELL COUNT INCREASED [None]
